FAERS Safety Report 13952935 (Version 1)
Quarter: 2017Q3

REPORT INFORMATION
  Report Type: Spontaneous
  Country: US (occurrence: US)
  Receive Date: 20170911
  Receipt Date: 20170911
  Transmission Date: 20171128
  Serious: No
  Sender: FDA-Public Use
  Company Number: US-TEVA-771402USA

PATIENT
  Sex: Male

DRUGS (1)
  1. FENTANYL TRANSDERMAL SYSTEM [Suspect]
     Active Substance: FENTANYL
     Indication: PAIN
     Route: 062
     Dates: start: 20170517

REACTIONS (5)
  - Somnolence [None]
  - Drug ineffective [Unknown]
  - Application site burn [None]
  - Wrong technique in product usage process [None]
  - Product adhesion issue [Unknown]
